FAERS Safety Report 18566377 (Version 2)
Quarter: 2021Q2

REPORT INFORMATION
  Report Type: Spontaneous
  Country: LT (occurrence: LT)
  Receive Date: 20201201
  Receipt Date: 20210607
  Transmission Date: 20210717
  Serious: Yes (Life-Threatening, Other)
  Sender: FDA-Public Use
  Company Number: LT-MYLANLABS-2020M1097478

PATIENT
  Age: 55 Year
  Sex: Male

DRUGS (6)
  1. SALBUTAMOL [Suspect]
     Active Substance: ALBUTEROL
     Indication: DYSPNOEA
  2. ACETYLSALICYLIC ACID [Suspect]
     Active Substance: ASPIRIN
     Indication: IMMUNE TOLERANCE INDUCTION
     Dosage: 30/60/100/150/300 MG IN ONE DAY SURVEILLANCE AND 300 MG ACETYLSALICYLIC ACID
  3. ACETYLSALICYLIC ACID [Suspect]
     Active Substance: ASPIRIN
     Dosage: UNK
  4. SALBUTAMOL [Suspect]
     Active Substance: ALBUTEROL
     Indication: COUGH
  5. SALBUTAMOL [Suspect]
     Active Substance: ALBUTEROL
     Indication: OROPHARYNGEAL PAIN
     Dosage: UNK
  6. SALBUTAMOL [Suspect]
     Active Substance: ALBUTEROL
     Indication: HYPERSENSITIVITY

REACTIONS (8)
  - Bronchospasm [Unknown]
  - Eosinophilic rhinitis [Recovering/Resolving]
  - Aspirin-exacerbated respiratory disease [Recovering/Resolving]
  - Nasal polyps [Recovered/Resolved]
  - Drug hypersensitivity [Recovering/Resolving]
  - Asthma [Recovering/Resolving]
  - Anaphylactic reaction [Unknown]
  - Off label use [Unknown]
